FAERS Safety Report 5197393-7 (Version None)
Quarter: 2006Q4

REPORT INFORMATION
  Report Type: 
  Country: None (occurrence: None)
  Receive Date: 20060928
  Receipt Date: 20050927
  Transmission Date: 20070319
  Serious: Yes (Hospitalization, Other)
  Sender: FDA-Public Use
  Company Number: HQWYE736429SEP05

PATIENT
  Age: 51 Year
  Sex: Female
  Weight: 89.89 kg

DRUGS (13)
  1. RAPAMUNE [Suspect]
     Indication: RENAL TRANSPLANT
     Dosage: ORAL
     Route: 048
     Dates: start: 20050101, end: 20060501
  2. PROGRAF [Concomitant]
  3. FLUOXETINE [Concomitant]
  4. METOCLOPRAMIDE [Concomitant]
  5. OMEPRAZOLE [Concomitant]
  6. ISOSORBIDE MONONITRATE [Concomitant]
  7. MIRAPEX [Concomitant]
  8. DIOVAN [Concomitant]
  9. TOPROL-XL [Concomitant]
  10. PREDNISONE TAB [Concomitant]
  11. CRESTOR [Concomitant]
  12. SYNTHROID [Concomitant]
  13. FOSAMAX [Concomitant]

REACTIONS (3)
  - DIARRHOEA [None]
  - NAUSEA [None]
  - VOMITING [None]
